FAERS Safety Report 5528755-3 (Version None)
Quarter: 2007Q4

REPORT INFORMATION
  Report Type: 
  Country: None (occurrence: None)
  Receive Date: 20071119
  Receipt Date: 20070620
  Transmission Date: 20080405
  Serious: Yes (Other)
  Sender: FDA-Public Use
  Company Number: US-JNJFOC-20070605083

PATIENT
  Age: 25 Year
  Sex: Female
  Weight: 57.6068 kg

DRUGS (3)
  1. ELMIRON [Suspect]
     Indication: CYSTITIS INTERSTITIAL
     Dosage: 100 MG, 3 IN 24 HOUR, ORAL ; ORAL
     Route: 048
     Dates: start: 20050801, end: 20060601
  2. ELMIRON [Suspect]
     Indication: CYSTITIS INTERSTITIAL
     Dosage: 100 MG, 3 IN 24 HOUR, ORAL ; ORAL
     Route: 048
     Dates: start: 20070101
  3. ORTHO TRI-CYCLEN LO [Concomitant]

REACTIONS (2)
  - ABDOMINAL PAIN [None]
  - RECTAL HAEMORRHAGE [None]
